FAERS Safety Report 8967905 (Version 2)
Quarter: 2012Q4

REPORT INFORMATION
  Report Type: 
  Country: US (occurrence: US)
  Receive Date: 20121217
  Receipt Date: 20121221
  Transmission Date: 20130627
  Serious: Yes (Other)
  Sender: FDA-Public Use
  Company Number: US-PURDUE-USA-2012-0096162

PATIENT
  Sex: Female

DRUGS (3)
  1. OXYCONTIN (NDA 22-272) [Suspect]
     Indication: PRODUCT USED FOR UNKNOWN INDICATION
     Dosage: 60 mg, q8h
     Route: 048
     Dates: start: 20120926, end: 20121021
  2. OXYCONTIN (NDA 22-272) [Suspect]
     Dosage: 40 mg, q8h
     Route: 048
     Dates: start: 20121021
  3. OXYCONTIN (NDA 22-272) [Suspect]
     Dosage: 40 mg, q8h
     Dates: start: 2010

REACTIONS (5)
  - Intestinal obstruction [Unknown]
  - Dehydration [Unknown]
  - Constipation [Recovered/Resolved]
  - Drug intolerance [Unknown]
  - Drug effect decreased [Not Recovered/Not Resolved]
